FAERS Safety Report 14636814 (Version 3)
Quarter: 2018Q2

REPORT INFORMATION
  Report Type: Spontaneous
  Country: CZ (occurrence: CZ)
  Receive Date: 20180314
  Receipt Date: 20180509
  Transmission Date: 20180711
  Serious: Yes (Other)
  Sender: FDA-Public Use
  Company Number: CZ-SA-2018SA033133

PATIENT
  Age: 65 Year
  Sex: Male
  Weight: 80 kg

DRUGS (20)
  1. PREDNISONE. [Suspect]
     Active Substance: PREDNISONE
     Indication: STILL^S DISEASE
     Dosage: HIGH DOSE
     Route: 065
     Dates: start: 201706
  2. PREDNISONE. [Suspect]
     Active Substance: PREDNISONE
     Indication: STILL^S DISEASE
     Dosage: 1 MG/KG OF BODY WEIGHT/DAY
     Route: 065
     Dates: start: 201512
  3. SOLOSTAR [Suspect]
     Active Substance: DEVICE
     Indication: DIABETIC METABOLIC DECOMPENSATION
     Dates: start: 201601
  4. HUMALOG [Suspect]
     Active Substance: INSULIN LISPRO
     Indication: DIABETIC METABOLIC DECOMPENSATION
     Dosage: DOSE:8 UNIT(S)
     Route: 058
     Dates: start: 201601
  5. PREDNISONE. [Suspect]
     Active Substance: PREDNISONE
     Indication: STILL^S DISEASE
     Route: 065
     Dates: start: 2016
  6. PREDNISONE. [Suspect]
     Active Substance: PREDNISONE
     Indication: STILL^S DISEASE
     Dosage: DOSE REDUCTION
     Route: 065
  7. PREDNISONE. [Suspect]
     Active Substance: PREDNISONE
     Indication: STILL^S DISEASE
     Dosage: HIGH DOSE
     Route: 065
     Dates: start: 201702
  8. TOUJEO [Suspect]
     Active Substance: INSULIN GLARGINE
     Indication: DIABETES MELLITUS
     Dosage: DOSE INCREASED
     Route: 058
     Dates: end: 201705
  9. TOUJEO [Suspect]
     Active Substance: INSULIN GLARGINE
     Indication: DIABETES MELLITUS
     Dosage: 10 PM DOSE:12 UNIT(S)
     Route: 058
     Dates: start: 201601
  10. SOLOSTAR [Suspect]
     Active Substance: DEVICE
     Indication: DIABETES MELLITUS
     Dates: start: 201601
  11. SOLOSTAR [Suspect]
     Active Substance: DEVICE
     Indication: DIABETIC METABOLIC DECOMPENSATION
     Dates: end: 201705
  12. TOUJEO [Suspect]
     Active Substance: INSULIN GLARGINE
     Indication: DIABETIC METABOLIC DECOMPENSATION
     Dosage: 10 PM DOSE:12 UNIT(S)
     Route: 058
     Dates: start: 201601
  13. HUMALOG [Suspect]
     Active Substance: INSULIN LISPRO
     Indication: DIABETES MELLITUS
     Dosage: DOSE:8 UNIT(S)
     Route: 058
     Dates: start: 201601
  14. PREDNISONE. [Suspect]
     Active Substance: PREDNISONE
     Indication: STILL^S DISEASE
     Route: 065
     Dates: end: 2016
  15. SOLOSTAR [Suspect]
     Active Substance: DEVICE
     Indication: DIABETES MELLITUS
     Dates: end: 201705
  16. HUMALOG [Suspect]
     Active Substance: INSULIN LISPRO
     Indication: DIABETIC METABOLIC DECOMPENSATION
     Dosage: DOSE INCREASED
     Route: 058
     Dates: end: 201705
  17. PREDNISONE. [Suspect]
     Active Substance: PREDNISONE
     Indication: STILL^S DISEASE
     Dosage: HIGH DOSE
     Route: 065
     Dates: start: 2017, end: 201706
  18. TOUJEO [Suspect]
     Active Substance: INSULIN GLARGINE
     Indication: DIABETIC METABOLIC DECOMPENSATION
     Dosage: DOSE INCREASED
     Route: 058
     Dates: end: 201705
  19. PREDNISONE. [Suspect]
     Active Substance: PREDNISONE
     Indication: STILL^S DISEASE
     Dosage: HIGH DOSE
     Route: 065
     Dates: start: 2016, end: 201702
  20. HUMALOG [Suspect]
     Active Substance: INSULIN LISPRO
     Indication: DIABETES MELLITUS
     Dosage: DOSE INCREASED
     Route: 058
     Dates: end: 201705

REACTIONS (22)
  - Blood fibrinogen increased [Recovered/Resolved]
  - Myalgia [Recovering/Resolving]
  - Diabetes mellitus [Recovering/Resolving]
  - Rebound effect [Unknown]
  - Leukocytosis [Recovered/Resolved]
  - Lymphadenopathy mediastinal [Recovering/Resolving]
  - Neutrophil count increased [Recovered/Resolved]
  - Diabetic metabolic decompensation [Recovering/Resolving]
  - Drug ineffective [Unknown]
  - Night sweats [Recovering/Resolving]
  - Lymphadenopathy [Recovering/Resolving]
  - Splenomegaly [Recovering/Resolving]
  - Still^s disease [Recovering/Resolving]
  - Treatment failure [Unknown]
  - C-reactive protein increased [Recovering/Resolving]
  - Pyrexia [Recovering/Resolving]
  - Blood immunoglobulin G increased [Recovered/Resolved]
  - Arthralgia [Recovering/Resolving]
  - Asthenia [Recovering/Resolving]
  - Retroperitoneal lymphadenopathy [Recovering/Resolving]
  - Haemoglobin decreased [Recovered/Resolved]
  - Blood albumin decreased [Recovering/Resolving]

NARRATIVE: CASE EVENT DATE: 201512
